FAERS Safety Report 25941420 (Version 1)
Quarter: 2025Q4

REPORT INFORMATION
  Report Type: Report from Study
  Country: US (occurrence: US)
  Receive Date: 20251020
  Receipt Date: 20251020
  Transmission Date: 20260118
  Serious: No
  Sender: JOHNSON AND JOHNSON
  Company Number: US-JNJFOC-20250941840

PATIENT

DRUGS (22)
  1. TALVEY [Suspect]
     Active Substance: TALQUETAMAB-TGVS
     Indication: Product used for unknown indication
     Route: 065
  2. TALVEY [Suspect]
     Active Substance: TALQUETAMAB-TGVS
     Route: 065
  3. TALVEY [Suspect]
     Active Substance: TALQUETAMAB-TGVS
     Route: 065
  4. TALVEY [Suspect]
     Active Substance: TALQUETAMAB-TGVS
     Route: 065
  5. TALVEY [Suspect]
     Active Substance: TALQUETAMAB-TGVS
     Route: 065
  6. TALVEY [Suspect]
     Active Substance: TALQUETAMAB-TGVS
     Route: 065
  7. TALVEY [Suspect]
     Active Substance: TALQUETAMAB-TGVS
     Route: 065
  8. TALVEY [Suspect]
     Active Substance: TALQUETAMAB-TGVS
     Route: 065
  9. TALVEY [Suspect]
     Active Substance: TALQUETAMAB-TGVS
     Route: 065
  10. TALVEY [Suspect]
     Active Substance: TALQUETAMAB-TGVS
     Route: 065
  11. TALVEY [Suspect]
     Active Substance: TALQUETAMAB-TGVS
     Route: 065
  12. TALVEY [Suspect]
     Active Substance: TALQUETAMAB-TGVS
     Route: 065
  13. TALVEY [Suspect]
     Active Substance: TALQUETAMAB-TGVS
     Route: 065
  14. TALVEY [Suspect]
     Active Substance: TALQUETAMAB-TGVS
     Route: 065
  15. TALVEY [Suspect]
     Active Substance: TALQUETAMAB-TGVS
     Route: 065
  16. TALVEY [Suspect]
     Active Substance: TALQUETAMAB-TGVS
     Route: 065
  17. TALVEY [Suspect]
     Active Substance: TALQUETAMAB-TGVS
     Route: 065
  18. TALVEY [Suspect]
     Active Substance: TALQUETAMAB-TGVS
     Route: 065
  19. TALVEY [Suspect]
     Active Substance: TALQUETAMAB-TGVS
     Route: 065
  20. TECVAYLI [Suspect]
     Active Substance: TECLISTAMAB-CQYV
     Indication: Product used for unknown indication
     Route: 065
  21. TECVAYLI [Suspect]
     Active Substance: TECLISTAMAB-CQYV
     Route: 065
  22. TECVAYLI [Suspect]
     Active Substance: TECLISTAMAB-CQYV
     Route: 065

REACTIONS (1)
  - Inappropriate schedule of product administration [Unknown]
